FAERS Safety Report 9217185 (Version 2)
Quarter: 2013Q2

REPORT INFORMATION
  Report Type: Spontaneous
  Country: FR (occurrence: FR)
  Receive Date: 20130408
  Receipt Date: 20130412
  Transmission Date: 20140414
  Serious: Yes (Other)
  Sender: FDA-Public Use
  Company Number: FR-ROCHE-1207669

PATIENT
  Age: 50 Year
  Sex: Male

DRUGS (8)
  1. ZELBORAF [Suspect]
     Indication: METASTATIC MALIGNANT MELANOMA
     Route: 048
     Dates: start: 2013
  2. KETOPROFEN [Interacting]
     Indication: PAIN
     Route: 048
  3. ZOMETA [Concomitant]
     Indication: HYPERCALCAEMIA
     Route: 042
  4. ZOPHREN [Concomitant]
     Indication: VOMITING
     Route: 048
  5. ACTISKENAN [Concomitant]
     Indication: PAIN
     Route: 048
  6. SKENAN [Concomitant]
     Indication: PAIN
     Route: 048
  7. VALACICLOVIR [Concomitant]
  8. COTRIMOXAZOLE [Concomitant]

REACTIONS (3)
  - Radiation skin injury [Recovered/Resolved]
  - Photosensitivity reaction [Recovered/Resolved with Sequelae]
  - Drug interaction [Unknown]
